FAERS Safety Report 7704512-4 (Version None)
Quarter: 2011Q3

REPORT INFORMATION
  Report Type: 
  Country: None (occurrence: None)
  Receive Date: 20110823
  Receipt Date: 20110811
  Transmission Date: 20111222
  Serious: Yes (Other)
  Sender: FDA-Public Use
  Company Number: US-PFIZER INC-2011185306

PATIENT
  Sex: Female

DRUGS (6)
  1. ATENOLOL [Concomitant]
     Indication: PALPITATIONS
     Dosage: UNK
  2. PRISTIQ [Suspect]
     Indication: MAJOR DEPRESSION
     Dosage: 50 MG, 1X/DAY
     Route: 048
     Dates: start: 20090101, end: 20090101
  3. PRISTIQ [Suspect]
     Dosage: 100 MG, 1X/DAY
     Route: 048
     Dates: start: 20090101
  4. ATENOLOL [Concomitant]
     Indication: TACHYCARDIA
  5. TRAZODONE [Concomitant]
     Indication: INSOMNIA
     Dosage: UNK
  6. TRAZODONE [Concomitant]
     Indication: NIGHTMARE

REACTIONS (3)
  - RENAL FAILURE CHRONIC [None]
  - DRUG INEFFECTIVE [None]
  - HYPONATRAEMIA [None]
